FAERS Safety Report 13906064 (Version 2)
Quarter: 2017Q3

REPORT INFORMATION
  Report Type: Spontaneous
  Country: US (occurrence: US)
  Receive Date: 20170825
  Receipt Date: 20170919
  Transmission Date: 20171127
  Serious: No
  Sender: FDA-Public Use
  Company Number: PHEH2017US025857

PATIENT
  Sex: Female
  Weight: 58.5 kg

DRUGS (2)
  1. SWIM-EAR [Suspect]
     Active Substance: ISOPROPYL ALCOHOL
     Indication: EAR CONGESTION
     Dosage: 4 TO 5 DRP, TID
     Route: 001
     Dates: start: 20170811
  2. LISINOPRIL. [Concomitant]
     Active Substance: LISINOPRIL
     Indication: HYPERTENSION
     Dosage: 10 MG, QD
     Route: 065

REACTIONS (1)
  - Ear congestion [Recovered/Resolved]
